FAERS Safety Report 5614747-2 (Version None)
Quarter: 2008Q1

REPORT INFORMATION
  Report Type: 
  Country: None (occurrence: None)
  Receive Date: 20080205
  Receipt Date: 20080128
  Transmission Date: 20080703
  Serious: Yes (Hospitalization)
  Sender: FDA-Public Use
  Company Number: US-ELI_LILLY_AND_COMPANY-US200801005882

PATIENT
  Sex: Female

DRUGS (9)
  1. HUMATROPE [Suspect]
     Indication: GROWTH HORMONE DEFICIENCY
     Dosage: UNK, UNKNOWN
  2. CELEBREX [Concomitant]
     Dosage: UNK, UNKNOWN
  3. CARDIZEM LA [Concomitant]
     Dosage: UNK, UNKNOWN
  4. LISINOPRIL [Concomitant]
     Dosage: UNK, UNKNOWN
  5. FOLIC ACID [Concomitant]
     Dosage: UNK, UNKNOWN
  6. LASIX [Concomitant]
     Dosage: UNK, UNKNOWN
  7. VICODIN [Concomitant]
     Dosage: UNK, UNKNOWN
  8. METHOTREXATE [Concomitant]
     Dosage: UNK, UNKNOWN
  9. AMBIEN [Concomitant]
     Dosage: UNK, UNKNOWN

REACTIONS (1)
  - SUICIDE ATTEMPT [None]
